FAERS Safety Report 16844163 (Version 2)
Quarter: 2019Q3

REPORT INFORMATION
  Report Type: Spontaneous
  Country: GB (occurrence: GB)
  Receive Date: 20190924
  Receipt Date: 20190930
  Transmission Date: 20191005
  Serious: Yes (Hospitalization, Other)
  Sender: FDA-Public Use
  Company Number: GB-AUROBINDO-AUR-APL-2019-062387

PATIENT
  Age: 73 Year
  Sex: Male

DRUGS (4)
  1. BISOPROLOL [Suspect]
     Active Substance: BISOPROLOL
     Indication: ATRIAL FIBRILLATION
     Dosage: UNK
     Route: 065
  2. ASPIRIN. [Suspect]
     Active Substance: ASPIRIN
     Indication: ANTICOAGULANT THERAPY
     Dosage: UNK
     Route: 065
  3. EDOXABAN [Suspect]
     Active Substance: EDOXABAN TOSYLATE
     Indication: ANTICOAGULANT THERAPY
  4. EDOXABAN [Suspect]
     Active Substance: EDOXABAN TOSYLATE
     Indication: ATRIAL FIBRILLATION
     Dosage: UNK
     Route: 065

REACTIONS (9)
  - Pain in jaw [Unknown]
  - Weight decreased [Unknown]
  - Fatigue [Recovering/Resolving]
  - Product use in unapproved indication [Unknown]
  - Jaw disorder [Recovering/Resolving]
  - Toxicity to various agents [Unknown]
  - Chest pain [Recovering/Resolving]
  - Large intestinal haemorrhage [Recovering/Resolving]
  - Myocardial ischaemia [Unknown]
